FAERS Safety Report 17818867 (Version 2)
Quarter: 2020Q2

REPORT INFORMATION
  Report Type: Report from Study
  Country: FR (occurrence: FR)
  Receive Date: 20200523
  Receipt Date: 20200617
  Transmission Date: 20200714
  Serious: Yes (Hospitalization, Other)
  Sender: FDA-Public Use
  Company Number: FR-ROCHE-2604962

PATIENT
  Sex: Female
  Weight: 47 kg

DRUGS (9)
  1. SOLUPRED [PREDNISOLONE METASULFOBENZOATE SODIUM] [Concomitant]
     Active Substance: PREDNISOLONE SODIUM METAZOATE
  2. PACLITAXEL. [Suspect]
     Active Substance: PACLITAXEL
     Indication: CERVIX CANCER METASTATIC
     Route: 042
     Dates: start: 20200115, end: 20200429
  3. CISPLATIN. [Suspect]
     Active Substance: CISPLATIN
     Indication: CERVIX CANCER METASTATIC
     Route: 042
     Dates: start: 20200115, end: 20200408
  4. PARACETAMOL [Concomitant]
     Active Substance: ACETAMINOPHEN
     Indication: PAIN
     Route: 048
  5. BEVACIZUMAB. [Suspect]
     Active Substance: BEVACIZUMAB
     Indication: CERVIX CANCER METASTATIC
     Route: 042
     Dates: start: 20200115, end: 20200429
  6. SOLUPRED [PREDNISOLONE METASULFOBENZOATE SODIUM] [Concomitant]
     Active Substance: PREDNISOLONE SODIUM METAZOATE
     Route: 048
     Dates: start: 20200419, end: 20200420
  7. LOSARTAN. [Concomitant]
     Active Substance: LOSARTAN
  8. EMEND [Concomitant]
     Active Substance: APREPITANT
  9. EUPRESSYL [URAPIDIL] [Concomitant]
     Active Substance: URAPIDIL

REACTIONS (2)
  - Ototoxicity [Not Recovered/Not Resolved]
  - Vomiting [Recovered/Resolved]

NARRATIVE: CASE EVENT DATE: 20200324
